FAERS Safety Report 10890032 (Version 2)
Quarter: 2015Q1

REPORT INFORMATION
  Report Type: Spontaneous
  Country: US (occurrence: US)
  Receive Date: 20150305
  Receipt Date: 20150330
  Transmission Date: 20150721
  Serious: No
  Sender: FDA-Public Use
  Company Number: US-PFIZER INC-2015076774

PATIENT
  Age: 92 Year
  Sex: Female

DRUGS (2)
  1. SPIRONOLACTONE. [Suspect]
     Active Substance: SPIRONOLACTONE
     Dosage: UNK
  2. VENTAVIS [Suspect]
     Active Substance: ILOPROST
     Dosage: UNK

REACTIONS (1)
  - Drug hypersensitivity [Unknown]
